FAERS Safety Report 15675474 (Version 2)
Quarter: 2019Q1

REPORT INFORMATION
  Report Type: Spontaneous
  Country: JP (occurrence: JP)
  Receive Date: 20181130
  Receipt Date: 20190108
  Transmission Date: 20190417
  Serious: Yes (Hospitalization)
  Sender: FDA-Public Use
  Company Number: JP-ELI_LILLY_AND_COMPANY-JP201811012132

PATIENT
  Age: 55 Year
  Sex: Female

DRUGS (7)
  1. TALTZ [Suspect]
     Active Substance: IXEKIZUMAB
     Indication: PSORIATIC ARTHROPATHY
     Dosage: 80 MG, UNK
     Route: 058
     Dates: start: 20181109, end: 20181109
  2. METGLUCO [Concomitant]
     Active Substance: METFORMIN HYDROCHLORIDE
     Indication: DIABETES MELLITUS
     Dosage: 750 MG, DAILY
     Route: 048
  3. BIOFERMIN R [Concomitant]
     Active Substance: BACILLUS SUBTILIS\LACTOBACILLUS ACIDOPHILUS\STREPTOCOCCUS FAECAIS
     Indication: DIABETES MELLITUS
     Dosage: UNK
     Route: 048
  4. LOXOPROFEN [Concomitant]
     Active Substance: LOXOPROFEN
     Indication: PSORIATIC ARTHROPATHY
     Dosage: 180 MG, DAILY
     Route: 048
  5. TEPRENONE [Concomitant]
     Active Substance: TEPRENONE
     Indication: DIABETES MELLITUS
     Dosage: 150 MG, DAILY
     Route: 048
  6. SENNOSIDE A+B [Concomitant]
     Active Substance: SENNOSIDES A AND B
     Indication: DIABETES MELLITUS
     Dosage: 12 MG, DAILY
     Route: 048
  7. HIRUDOID [Concomitant]
     Active Substance: GLYCOSAMINOGLYCANS
     Indication: PSORIATIC ARTHROPATHY
     Dosage: UNK
     Route: 065

REACTIONS (1)
  - Cellulitis [Recovering/Resolving]

NARRATIVE: CASE EVENT DATE: 20181114
